FAERS Safety Report 21748163 (Version 1)
Quarter: 2022Q4

REPORT INFORMATION
  Report Type: Spontaneous
  Country: BE (occurrence: BE)
  Receive Date: 20221219
  Receipt Date: 20221219
  Transmission Date: 20230113
  Serious: Yes (Life-Threatening, Hospitalization, Other)
  Sender: FDA-Public Use
  Company Number: None

PATIENT
  Sex: Female
  Weight: 55 kg

DRUGS (2)
  1. PANTOPRAZOLE [Suspect]
     Active Substance: PANTOPRAZOLE
     Indication: Chronic gastritis
     Dosage: 1 DOSAGE FORM, QD
     Route: 048
  2. ZOLPIDEM [Concomitant]
     Active Substance: ZOLPIDEM TARTRATE
     Dosage: UNK

REACTIONS (10)
  - Visual impairment [Unknown]
  - Urticaria [Unknown]
  - Infection [Unknown]
  - Pruritus [Unknown]
  - Pharyngeal swelling [Unknown]
  - Peripheral swelling [Unknown]
  - Dementia [Unknown]
  - Panic attack [Unknown]
  - Cardiac disorder [Unknown]
  - Depression [Unknown]
